FAERS Safety Report 25493114 (Version 1)
Quarter: 2025Q2

REPORT INFORMATION
  Report Type: Spontaneous
  Country: PL (occurrence: PL)
  Receive Date: 20250630
  Receipt Date: 20250630
  Transmission Date: 20250717
  Serious: Yes (Hospitalization, Other)
  Sender: Kenvue
  Company Number: PL-PFM-2022-08218

PATIENT

DRUGS (5)
  1. ACETAMINOPHEN [Suspect]
     Active Substance: ACETAMINOPHEN
     Indication: Infection
     Route: 065
     Dates: start: 2020
  2. DEXTROMETHORPHAN HYDROBROMIDE [Suspect]
     Active Substance: DEXTROMETHORPHAN HYDROBROMIDE
     Indication: Infection
     Route: 065
     Dates: start: 2020
  3. PSEUDOEPHEDRINE [Suspect]
     Active Substance: PSEUDOEPHEDRINE
     Indication: Infection
     Route: 065
     Dates: start: 2020
  4. HALOPERIDOL [Concomitant]
     Active Substance: HALOPERIDOL
     Indication: Delusion
     Route: 030
     Dates: end: 20201204
  5. METOPROLOL TARTRATE [Concomitant]
     Active Substance: METOPROLOL TARTRATE
     Indication: Adverse event
     Route: 065

REACTIONS (6)
  - Psychotic disorder [Recovered/Resolved]
  - Vitamin D deficiency [Unknown]
  - Hypertension [Unknown]
  - Borrelia test positive [Unknown]
  - Electroencephalogram abnormal [Unknown]
  - Retention cyst [Unknown]
